FAERS Safety Report 13855075 (Version 1)
Quarter: 2017Q3

REPORT INFORMATION
  Report Type: Spontaneous
  Country: BE (occurrence: BE)
  Receive Date: 20170810
  Receipt Date: 20170810
  Transmission Date: 20171127
  Serious: Yes (Hospitalization, Other)
  Sender: FDA-Public Use
  Company Number: BE-ACTELION-A-CH2017-156073

PATIENT
  Age: 8 Month
  Sex: Female
  Weight: 5.6 kg

DRUGS (6)
  1. TRACLEER [Suspect]
     Active Substance: BOSENTAN
     Indication: PULMONARY ARTERIAL HYPERTENSION
     Dosage: 10 MG, BID
     Route: 048
     Dates: start: 20170112, end: 20170523
  2. TRACLEER [Suspect]
     Active Substance: BOSENTAN
     Dosage: 5 MG, BID
     Route: 048
     Dates: start: 20170602, end: 20170606
  3. SILDENAFIL. [Concomitant]
     Active Substance: SILDENAFIL
     Indication: PULMONARY ARTERIAL HYPERTENSION
     Dosage: 8 MG, TID
     Route: 048
     Dates: start: 20170126
  4. LOSEC [Concomitant]
     Active Substance: OMEPRAZOLE
     Indication: PROPHYLAXIS
     Dosage: 10 MG, QD
     Route: 048
     Dates: start: 201703
  5. D-CURE [Concomitant]
     Indication: PROPHYLAXIS
     Dosage: 10 DROP, QD
     Route: 048
     Dates: start: 20160912
  6. ASPEGIC [Concomitant]
     Active Substance: ASPIRIN DL-LYSINE
     Indication: PULMONARY ARTERIAL HYPERTENSION
     Dosage: 20 MG, QD
     Route: 048
     Dates: start: 201701

REACTIONS (7)
  - Hepatic enzyme increased [Recovered/Resolved]
  - Aspartate aminotransferase increased [Recovered/Resolved]
  - Dehydration [Unknown]
  - Alanine aminotransferase increased [Recovered/Resolved]
  - General physical health deterioration [Unknown]
  - Decreased appetite [Unknown]
  - Vomiting [Recovered/Resolved]

NARRATIVE: CASE EVENT DATE: 20170519
